FAERS Safety Report 11734747 (Version 9)
Quarter: 2016Q2

REPORT INFORMATION
  Report Type: Spontaneous
  Country: US (occurrence: US)
  Receive Date: 20151113
  Receipt Date: 20160620
  Transmission Date: 20160815
  Serious: Yes (Life-Threatening, Other)
  Sender: FDA-Public Use
  Company Number: US-PFIZER INC-2015347990

PATIENT
  Age: 81 Year
  Sex: Male
  Weight: 73 kg

DRUGS (17)
  1. SUTENT [Suspect]
     Active Substance: SUNITINIB MALATE
     Indication: RENAL CANCER STAGE IV
     Dosage: 50 MG, CYCLIC (DAILY FOR 3 WEEKS - OFF 1 WEEK, THEN X 2 WEEKS AND OFF 1 WEEK CYCLES))
     Route: 048
     Dates: start: 20150626
  2. SUTENT [Suspect]
     Active Substance: SUNITINIB MALATE
     Dosage: 37.5 MG, CYCLIC (DAILY FOR 10 DAYS, THEN 7 DAYS OFF)
     Route: 048
     Dates: start: 201506
  3. AMLODIPINE BESILATE [Suspect]
     Active Substance: AMLODIPINE BESYLATE
     Indication: HYPERTENSION
     Dosage: 5 MG, 2X/DAY
     Route: 048
     Dates: start: 20160511
  4. PROLIA [Suspect]
     Active Substance: DENOSUMAB
     Indication: BONE DISORDER
     Dosage: 60 MG, UNK
  5. GLYBURIDE. [Concomitant]
     Active Substance: GLYBURIDE
     Indication: TYPE 2 DIABETES MELLITUS
     Dosage: 0.625 MG, AS NEEDED (HALF OF 1.25 MG)
  6. VITAMIN B3 [Concomitant]
     Active Substance: NIACIN
     Dosage: UNK
  7. ZOCOR [Concomitant]
     Active Substance: SIMVASTATIN
     Indication: HYPERLIPIDAEMIA
     Dosage: 10 MG, ALTERNATE DAY (EVERY OTHER NIGHT)
     Dates: start: 20151025
  8. VITAMIN C [Concomitant]
     Active Substance: ASCORBIC ACID
     Indication: ANTIOXIDANT THERAPY
     Dosage: 1 G, 2X/DAY
     Dates: start: 1990
  9. NIASPAN [Concomitant]
     Active Substance: NIACIN
     Indication: LIPIDS INCREASED
     Dosage: 1 G, ALTERNATE DAY
     Dates: start: 20151026
  10. COENZIME Q10 [Concomitant]
     Dosage: 200 MG, UNK
  11. TORASEMIDE [Concomitant]
     Active Substance: TORSEMIDE
     Indication: HYPERTENSION
     Dosage: 2.5 MG, 2X/DAY
     Route: 048
     Dates: start: 20160523
  12. NIACIN ER [Concomitant]
     Active Substance: NIACIN
     Indication: LIPIDS INCREASED
     Dosage: 1 G, 1X/DAY (Q OTHER - HS)
     Dates: start: 20151026
  13. SUTENT [Suspect]
     Active Substance: SUNITINIB MALATE
     Dosage: 37.5 MG, CYCLIC (DAILY FOR 14 DAYS, THEN 7 DAYS OFF)
     Route: 048
     Dates: start: 201506
  14. NIACIN ER [Concomitant]
     Active Substance: NIACIN
     Indication: BLOOD TRIGLYCERIDES INCREASED
     Dosage: 1000 MG, ALTERNATE DAY (EVERY OTHER NIGHT, BED TIME)
  15. LISINOPRIL. [Concomitant]
     Active Substance: LISINOPRIL
     Indication: HYPERTENSION
     Dosage: 2.5 MG, AS NEEDED
  16. LISINOPRIL. [Concomitant]
     Active Substance: LISINOPRIL
     Dosage: 5 MG, AS NEEDED
  17. NIASPAN [Concomitant]
     Active Substance: NIACIN
     Indication: BLOOD TRIGLYCERIDES INCREASED

REACTIONS (18)
  - Platelet count decreased [Recovering/Resolving]
  - Hypoglycaemia [Unknown]
  - Therapeutic response unexpected [Unknown]
  - Condition aggravated [Recovering/Resolving]
  - Dysgeusia [Unknown]
  - Pain in extremity [Recovering/Resolving]
  - Feeling abnormal [Unknown]
  - Hyperkalaemia [Unknown]
  - Weight decreased [Unknown]
  - Back pain [Not Recovered/Not Resolved]
  - Memory impairment [Not Recovered/Not Resolved]
  - Oedema peripheral [Recovering/Resolving]
  - Hair colour changes [Not Recovered/Not Resolved]
  - Skin irritation [Unknown]
  - Anaemia megaloblastic [Not Recovered/Not Resolved]
  - Hypertension [Not Recovered/Not Resolved]
  - Yellow skin [Recovering/Resolving]
  - Skin lesion [Recovering/Resolving]

NARRATIVE: CASE EVENT DATE: 2015
